FAERS Safety Report 5834265-6 (Version None)
Quarter: 2008Q3

REPORT INFORMATION
  Report Type: 
  Country: None (occurrence: None)
  Receive Date: 20080805
  Receipt Date: 20080728
  Transmission Date: 20090109
  Serious: Yes (Other)
  Sender: FDA-Public Use
  Company Number: PHHY2008GB16719

PATIENT
  Sex: Female

DRUGS (2)
  1. ZOLEDRONIC ACID [Suspect]
     Dosage: 5 MG
     Dates: start: 20080723
  2. IBUPROFEN TABLETS [Concomitant]

REACTIONS (5)
  - DERMATITIS BULLOUS [None]
  - EYE PAIN [None]
  - GLOSSODYNIA [None]
  - PHOTOPHOBIA [None]
  - SWELLING FACE [None]
